FAERS Safety Report 4560832-6 (Version None)
Quarter: 2005Q1

REPORT INFORMATION
  Report Type: 
  Country: None (occurrence: None)
  Receive Date: 20050121
  Receipt Date: 20050107
  Transmission Date: 20050727
  Serious: Yes (Death)
  Sender: FDA-Public Use
  Company Number: MC200500024

PATIENT
  Age: 76 Year
  Sex: Female

DRUGS (1)
  1. ANGOX(BIVALIRUDIN) INJECTION [Suspect]
     Dosage: INTRAVENOUS
     Route: 042
     Dates: start: 20041216

REACTIONS (2)
  - DELAYED RECOVERY FROM ANAESTHESIA [None]
  - POST PROCEDURAL COMPLICATION [None]
